FAERS Safety Report 15553674 (Version 2)
Quarter: 2018Q4

REPORT INFORMATION
  Report Type: Report from Study
  Country: CO (occurrence: CO)
  Receive Date: 20181026
  Receipt Date: 20181129
  Transmission Date: 20190205
  Serious: Yes (Hospitalization)
  Sender: FDA-Public Use
  Company Number: CO-ASTELLAS-2018US045692

PATIENT
  Age: 61 Year
  Sex: Male

DRUGS (6)
  1. TACROLIMUS. [Suspect]
     Active Substance: TACROLIMUS
     Indication: RENAL TRANSPLANT
     Dosage: 8 MG, (1 CAPSULE OF 5 MG OF 1 CAPSULES 3 MG)
     Route: 048
     Dates: start: 20170802, end: 20181022
  2. TACROLIMUS. [Suspect]
     Active Substance: TACROLIMUS
     Dosage: 4 MG, (1 CAPSULE OF 3 MG OF 1 CAPSULES 1 MG)
     Route: 048
     Dates: start: 20181022
  3. MYCOPHENOLATE [Concomitant]
     Active Substance: MYCOPHENOLIC ACID
     Indication: PRODUCT USED FOR UNKNOWN INDICATION
     Route: 048
     Dates: start: 20170802
  4. TACROLIMUS. [Suspect]
     Active Substance: TACROLIMUS
     Indication: RENAL TRANSPLANT
     Dosage: 8 MG, (1 CAPSULE OF 5 MG OF 1 CAPSULES 3 MG)
     Route: 048
     Dates: start: 20170802, end: 20181022
  5. TACROLIMUS. [Suspect]
     Active Substance: TACROLIMUS
     Indication: RENAL TRANSPLANT
     Dosage: 4 MG, (1 CAPSULE OF 3 MG OF 1 CAPSULES 1 MG)
     Route: 048
     Dates: start: 20181022
  6. PREDNISOLONE. [Concomitant]
     Active Substance: PREDNISOLONE
     Indication: PRODUCT USED FOR UNKNOWN INDICATION
     Dosage: 0.5 MG, ONCE DAILY
     Route: 048
     Dates: start: 20170802

REACTIONS (7)
  - Diarrhoea [Recovered/Resolved]
  - Lung disorder [Unknown]
  - Bacterial infection [Unknown]
  - Malaise [Recovered/Resolved]
  - Pyrexia [Recovered/Resolved]
  - Asphyxia [Unknown]
  - Vomiting [Recovered/Resolved]

NARRATIVE: CASE EVENT DATE: 20180930
